FAERS Safety Report 24322853 (Version 2)
Quarter: 2024Q3

REPORT INFORMATION
  Report Type: Spontaneous
  Country: IT (occurrence: IT)
  Receive Date: 20240916
  Receipt Date: 20240926
  Transmission Date: 20241016
  Serious: Yes (Life-Threatening, Hospitalization, Other)
  Sender: AUROBINDO
  Company Number: IT-AUROBINDO-AUR-APL-2024-045245

PATIENT
  Age: 19 Year
  Sex: Female

DRUGS (12)
  1. LEVETIRACETAM [Suspect]
     Active Substance: LEVETIRACETAM
     Indication: Encephalopathy
     Dosage: UNK
     Route: 065
  2. TRIHEXYPHENIDYL [Suspect]
     Active Substance: TRIHEXYPHENIDYL
     Indication: Encephalopathy
     Dosage: UNK
     Route: 065
  3. TETRABENAZINE [Suspect]
     Active Substance: TETRABENAZINE
     Indication: Encephalopathy
     Dosage: UNK
     Route: 065
  4. CARBIDOPA AND LEVODOPA [Suspect]
     Active Substance: CARBIDOPA\LEVODOPA
     Indication: Encephalopathy
     Dosage: UNK
     Route: 065
  5. DIAZEPAM [Concomitant]
     Active Substance: DIAZEPAM
     Indication: Status dystonicus
     Dosage: 20 MILLIGRAM
     Route: 054
  6. DEXMEDETOMIDINE [Concomitant]
     Active Substance: DEXMEDETOMIDINE
     Indication: Status dystonicus
     Dosage: 1 ?G/KG/H
     Route: 065
  7. DEXMEDETOMIDINE [Concomitant]
     Active Substance: DEXMEDETOMIDINE
     Indication: Sedation
  8. MIDAZOLAM [Concomitant]
     Active Substance: MIDAZOLAM
     Indication: Status dystonicus
     Dosage: 20 MILLIGRAM
     Route: 042
  9. MIDAZOLAM [Concomitant]
     Active Substance: MIDAZOLAM
     Indication: Sedation
     Dosage: 0.5 MG/KG/H
     Route: 042
  10. MIDAZOLAM [Concomitant]
     Active Substance: MIDAZOLAM
     Dosage: 0.3 MG/KG/H
     Route: 042
  11. PROPOFOL [Concomitant]
     Active Substance: PROPOFOL
     Indication: Status dystonicus
     Dosage: 20 MILLIGRAM
     Route: 042
  12. PROPOFOL [Concomitant]
     Active Substance: PROPOFOL
     Indication: Sedation
     Dosage: 4 MG/KG/H
     Route: 065

REACTIONS (2)
  - Drug ineffective for unapproved indication [Unknown]
  - Off label use [Unknown]
